FAERS Safety Report 12121596 (Version 1)
Quarter: 2016Q1

REPORT INFORMATION
  Report Type: Spontaneous
  Country: US (occurrence: US)
  Receive Date: 20160226
  Receipt Date: 20160226
  Transmission Date: 20160526
  Serious: No
  Sender: FDA-Public Use
  Company Number: US-ALLERGAN-1216572US

PATIENT
  Age: 89 Year
  Sex: Female

DRUGS (4)
  1. DIOVAN                             /01319601/ [Concomitant]
     Indication: HYPERTENSION
     Dosage: UNK UNK, QD
     Route: 048
  2. PREDNISONE. [Concomitant]
     Active Substance: PREDNISONE
     Indication: ECZEMA
     Dosage: 10 MG, QOD
     Route: 048
  3. CLONIDINE. [Concomitant]
     Active Substance: CLONIDINE
     Indication: HYPERTENSION
     Dosage: 0.1 MG, QD
     Route: 048
  4. REFRESH OPTIVE [Suspect]
     Active Substance: CARBOXYMETHYLCELLULOSE SODIUM\GLYCERIN
     Indication: DRY EYE
     Dosage: 4 GTT, BID
     Route: 047
     Dates: start: 20121120, end: 20121123

REACTIONS (7)
  - Eye irritation [Recovered/Resolved]
  - Ocular hyperaemia [Recovered/Resolved]
  - Ocular discomfort [Recovered/Resolved]
  - Eye irritation [Recovered/Resolved]
  - Dry eye [Recovered/Resolved]
  - Erythema of eyelid [Recovered/Resolved]
  - Eye pruritus [Recovered/Resolved]

NARRATIVE: CASE EVENT DATE: 20121120
